FAERS Safety Report 9771270 (Version 1)
Quarter: 2013Q4

REPORT INFORMATION
  Report Type: Spontaneous
  Country: US (occurrence: US)
  Receive Date: 20131218
  Receipt Date: 20131218
  Transmission Date: 20140711
  Serious: Yes (Hospitalization)
  Sender: FDA-Public Use
  Company Number: US-B.I. PHARMACEUTICALS,INC./RIDGEFIELD-2013-BI-41823BP

PATIENT
  Sex: Female
  Weight: 51 kg

DRUGS (4)
  1. COMBIVENT [Suspect]
     Indication: CHRONIC OBSTRUCTIVE PULMONARY DISEASE
     Dosage: STRENGTH: 20 MCG / 100 MCG;
     Route: 055
     Dates: start: 201307, end: 201310
  2. VALIUM [Concomitant]
     Indication: NERVE INJURY
     Route: 048
  3. ALBUTEROL NEBULIZER [Concomitant]
     Indication: CHRONIC OBSTRUCTIVE PULMONARY DISEASE
     Route: 055
  4. ADVAIR [Concomitant]
     Indication: CHRONIC OBSTRUCTIVE PULMONARY DISEASE
     Dosage: STRENGTH: 250/50 MCG; DAILY DOSE: 500/100 MCG
     Route: 055

REACTIONS (3)
  - Pneumonia [Recovered/Resolved]
  - Asthenia [Recovered/Resolved]
  - Abasia [Recovered/Resolved]
